FAERS Safety Report 7424254-2 (Version None)
Quarter: 2011Q2

REPORT INFORMATION
  Report Type: 
  Country: None (occurrence: None)
  Receive Date: 20110413
  Receipt Date: 20110328
  Transmission Date: 20111010
  Serious: Yes (Hospitalization)
  Sender: FDA-Public Use
  Company Number: TPA2011A00998

PATIENT
  Age: 62 Year
  Sex: Male

DRUGS (10)
  1. DIAMICRON (GLICJAZIDE) [Concomitant]
  2. ATORVASTATIN CALCIUM [Concomitant]
  3. BISOPROLOL FUMARATE [Concomitant]
  4. KARDEGIC (ACETYLSALICYLATE LYSINE) [Concomitant]
  5. ADENURIC (FEBUXOSTAT) [Suspect]
     Dosage: 80 MG (80 MG, 1 IN 1 D) PER ORAL
     Route: 048
     Dates: start: 20110204
  6. ALDACTONE [Concomitant]
  7. LASIX [Concomitant]
  8. COVEREYL (PERINDOPRIL EREDMINE) [Concomitant]
  9. GLUCOR (ACAREOSE) [Concomitant]
  10. OMACOR [Concomitant]

REACTIONS (1)
  - VENTRICULAR TACHYCARDIA [None]
